FAERS Safety Report 10161720 (Version 1)
Quarter: 2014Q2

REPORT INFORMATION
  Report Type: Spontaneous
  Country: US (occurrence: US)
  Receive Date: 20140509
  Receipt Date: 20140509
  Transmission Date: 20141212
  Serious: Yes (Other)
  Sender: FDA-Public Use
  Company Number: US-RANBAXY-2014US-80872

PATIENT
  Sex: Male

DRUGS (3)
  1. LORATADINE AND PSEUDOEPHEDRINE [Suspect]
     Indication: HYPERSENSITIVITY
     Dosage: UNK
     Route: 065
     Dates: start: 201404
  2. LORATADINE AND PSEUDOEPHEDRINE [Suspect]
     Indication: NASOPHARYNGITIS
  3. LISINOPRIL [Concomitant]
     Indication: HYPERTENSION
     Dosage: UNK
     Route: 065

REACTIONS (2)
  - Hypotension [Unknown]
  - Urinary tract obstruction [Unknown]
